FAERS Safety Report 7057329-0 (Version None)
Quarter: 2010Q4

REPORT INFORMATION
  Report Type: 
  Country: None (occurrence: None)
  Receive Date: 20101022
  Receipt Date: 20101015
  Transmission Date: 20110411
  Serious: Yes (Death)
  Sender: FDA-Public Use
  Company Number: US-SANOFI-AVENTIS-2010SA063371

PATIENT
  Age: 86 Year
  Sex: Male

DRUGS (2)
  1. JEVTANA KIT [Suspect]
     Indication: PROSTATE CANCER METASTATIC
     Route: 051
     Dates: start: 20100901, end: 20100901
  2. JEVTANA KIT [Suspect]
     Route: 051
     Dates: start: 20100929, end: 20100929

REACTIONS (1)
  - INTESTINAL PERFORATION [None]
